FAERS Safety Report 12119833 (Version 2)
Quarter: 2016Q1

REPORT INFORMATION
  Report Type: Spontaneous
  Country: US (occurrence: US)
  Receive Date: 20160226
  Receipt Date: 20160321
  Transmission Date: 20160526
  Serious: No
  Sender: FDA-Public Use
  Company Number: US-JNJFOC-20160223930

PATIENT
  Sex: Female
  Weight: 82.1 kg

DRUGS (1)
  1. SANDOZ FENTANYL MATRIX TRANSDERMAL SYSTEM [Suspect]
     Active Substance: FENTANYL
     Indication: PAIN
     Route: 062
     Dates: end: 20160208

REACTIONS (7)
  - Wrong technique in product usage process [Unknown]
  - Headache [Recovered/Resolved]
  - Drug ineffective [Unknown]
  - Drug administered at inappropriate site [Recovered/Resolved]
  - Depression [Unknown]
  - Product quality issue [Unknown]
  - Product quality issue [Unknown]

NARRATIVE: CASE EVENT DATE: 2015
